FAERS Safety Report 21795326 (Version 1)
Quarter: 2022Q4

REPORT INFORMATION
  Report Type: Spontaneous
  Country: US (occurrence: US)
  Receive Date: 20221229
  Receipt Date: 20221229
  Transmission Date: 20230113
  Serious: No
  Sender: FDA-Public Use
  Company Number: US-ABBVIE-4253069

PATIENT

DRUGS (2)
  1. VENCLEXTA [Suspect]
     Active Substance: VENETOCLAX
     Indication: Acute monocytic leukaemia
     Route: 048
  2. AZACITIDINE [Concomitant]
     Active Substance: AZACITIDINE
     Indication: Product used for unknown indication

REACTIONS (2)
  - Rash [Unknown]
  - Lip swelling [Unknown]
